FAERS Safety Report 24409893 (Version 1)
Quarter: 2024Q4

REPORT INFORMATION
  Report Type: Report from Study
  Country: US (occurrence: US)
  Receive Date: 20241008
  Receipt Date: 20241008
  Transmission Date: 20250115
  Serious: Yes (Hospitalization, Other)
  Sender: GILEAD
  Company Number: US-GILEAD-2024-0690101

PATIENT
  Age: 23 Year
  Sex: Female

DRUGS (13)
  1. AZTREONAM LYSINE [Suspect]
     Active Substance: AZTREONAM LYSINE
     Indication: Cystic fibrosis
     Dosage: 75 MG, TID (28 DAYS, THEN OFF 28 DAYS)
     Route: 065
  2. AZTREONAM LYSINE [Suspect]
     Active Substance: AZTREONAM LYSINE
     Indication: Pseudomonas infection
  3. PREDNISONE [Concomitant]
     Active Substance: PREDNISONE
  4. AZITHROMYCIN [Concomitant]
     Active Substance: AZITHROMYCIN
  5. SERTRALINE [Concomitant]
     Active Substance: SERTRALINE HYDROCHLORIDE
  6. AZELASTINE [Concomitant]
     Active Substance: AZELASTINE
  7. AIRDUO DIGIHALER [Concomitant]
     Active Substance: FLUTICASONE PROPIONATE\SALMETEROL XINAFOATE
  8. SODIUM CHLORIDE [Concomitant]
     Active Substance: SODIUM CHLORIDE
  9. PULMOZYME [Concomitant]
     Active Substance: DORNASE ALFA
  10. CREON [Concomitant]
     Active Substance: PANCRELIPASE AMYLASE\PANCRELIPASE LIPASE\PANCRELIPASE PROTEASE
  11. FAMOTIDINE [Concomitant]
     Active Substance: FAMOTIDINE
  12. CHOLECALCIFEROL CRISTERS [Concomitant]
  13. ALBUTEROL SULFATE [Concomitant]
     Active Substance: ALBUTEROL SULFATE

REACTIONS (1)
  - Cystic fibrosis [Unknown]
